FAERS Safety Report 11593484 (Version 1)
Quarter: 2015Q4

REPORT INFORMATION
  Report Type: Spontaneous
  Country: US (occurrence: US)
  Receive Date: 20151005
  Receipt Date: 20151005
  Transmission Date: 20160304
  Serious: Yes (Hospitalization)
  Sender: FDA-Public Use
  Company Number: US-CTI_01792_2015

PATIENT
  Age: 18 Year
  Sex: Female

DRUGS (6)
  1. CIPRODEX [Concomitant]
     Active Substance: CIPROFLOXACIN HYDROCHLORIDE\DEXAMETHASONE
     Dosage: DF
  2. POLYETH GLYC [Concomitant]
     Active Substance: POLYETHYLENE GLYCOLS
     Dosage: DF
  3. PULMICORT TURBUHALER [Concomitant]
     Active Substance: BUDESONIDE
     Dosage: DF
  4. IPRATROPIUM [Concomitant]
     Active Substance: IPRATROPIUM
     Dosage: DF
  5. BETHKIS [Suspect]
     Active Substance: TOBRAMYCIN
     Indication: CYSTIC FIBROSIS
     Dosage: 300MG/4ML; 2X DAILY-14 DAYS
     Route: 055
  6. PULMOZYME [Concomitant]
     Active Substance: DORNASE ALFA
     Dosage: DF

REACTIONS (2)
  - Pneumonia pneumococcal [Recovering/Resolving]
  - Drug prescribing error [Not Recovered/Not Resolved]

NARRATIVE: CASE EVENT DATE: 201507
